FAERS Safety Report 5456245-5 (Version None)
Quarter: 2007Q3

REPORT INFORMATION
  Report Type: 
  Country: None (occurrence: None)
  Receive Date: 20070918
  Receipt Date: 20061110
  Transmission Date: 20080115
  Serious: No
  Sender: FDA-Public Use
  Company Number: US-ASTRAZENECA-2006UW23468

PATIENT
  Age: 50 Year
  Sex: Female

DRUGS (2)
  1. SEROQUEL [Suspect]
     Indication: BIPOLAR DISORDER
     Dosage: 200 MG AT NIGHT AND 25-50MG DURING THE DAY
     Route: 048
     Dates: start: 20061001
  2. SEROQUEL [Suspect]
     Indication: ANXIETY
     Dosage: 200 MG AT NIGHT AND 25-50MG DURING THE DAY
     Route: 048
     Dates: start: 20061001

REACTIONS (1)
  - RESTLESS LEGS SYNDROME [None]
